FAERS Safety Report 4975671-1 (Version None)
Quarter: 2006Q2

REPORT INFORMATION
  Report Type: 
  Country: None (occurrence: None)
  Receive Date: 20060411
  Receipt Date: 20060327
  Transmission Date: 20061013
  Serious: Yes (Death, Life-Threatening, Hospitalization)
  Sender: FDA-Public Use
  Company Number: 2006-00481

PATIENT
  Age: 72 Year
  Sex: Female
  Weight: 80.3 kg

DRUGS (5)
  1. VELCADE [Suspect]
     Indication: COLON CANCER
     Dosage: 1.30 MG/M2, IV BOLUS
     Route: 040
     Dates: start: 20060123, end: 20060224
  2. MS CONTIN [Concomitant]
  3. MORPHINE SULFATE [Concomitant]
  4. LASIX [Concomitant]
  5. HYDROCHLOROTHIAZIDE [Concomitant]

REACTIONS (12)
  - BRADYCARDIA [None]
  - CARDIO-RESPIRATORY ARREST [None]
  - CONFUSIONAL STATE [None]
  - DEHYDRATION [None]
  - HYPERKALAEMIA [None]
  - HYPOTENSION [None]
  - LETHARGY [None]
  - ORAL INTAKE REDUCED [None]
  - OXYGEN SATURATION DECREASED [None]
  - PNEUMONIA [None]
  - REFUSAL OF TREATMENT BY RELATIVE [None]
  - SEPSIS [None]
